FAERS Safety Report 9667708 (Version 1)
Quarter: 2013Q4

REPORT INFORMATION
  Report Type: Spontaneous
  Country: CA (occurrence: CA)
  Receive Date: 20131104
  Receipt Date: 20131104
  Transmission Date: 20140711
  Serious: Yes (Other)
  Sender: FDA-Public Use
  Company Number: CA-TEVA-442033USA

PATIENT
  Age: 23 Year
  Sex: Female

DRUGS (1)
  1. PLAN B ONE-STEP [Suspect]
     Indication: POST COITAL CONTRACEPTION
     Dosage: 2 X 0.75 MG
     Route: 048
     Dates: start: 201310, end: 201310

REACTIONS (1)
  - Rash pruritic [Not Recovered/Not Resolved]
